FAERS Safety Report 18079535 (Version 1)
Quarter: 2020Q3

REPORT INFORMATION
  Report Type: Spontaneous
  Country: US (occurrence: US)
  Receive Date: 20200728
  Receipt Date: 20200728
  Transmission Date: 20201103
  Serious: No
  Sender: FDA-Public Use
  Company Number: US-009507513-2007USA001558

PATIENT
  Age: 98 Year
  Sex: Female

DRUGS (2)
  1. PREDNISONE. [Suspect]
     Active Substance: PREDNISONE
     Indication: SKIN PLAQUE
     Dosage: TAPERED OVER 3 WEEKS (10?40 MG/D)
     Route: 048
  2. DIPROLENE AF [Suspect]
     Active Substance: BETAMETHASONE DIPROPIONATE
     Indication: SKIN PLAQUE

REACTIONS (1)
  - Treatment failure [Unknown]
